FAERS Safety Report 15580682 (Version 1)
Quarter: 2018Q4

REPORT INFORMATION
  Report Type: Spontaneous
  Country: IT (occurrence: IT)
  Receive Date: 20181102
  Receipt Date: 20181102
  Transmission Date: 20190205
  Serious: Yes (Hospitalization)
  Sender: FDA-Public Use
  Company Number: IT-PFIZER INC-2018445959

PATIENT
  Age: 77 Year
  Sex: Male

DRUGS (4)
  1. ATORVASTATINA PFIZER [Suspect]
     Active Substance: ATORVASTATIN
     Indication: DYSLIPIDAEMIA
     Dosage: 40 MG, 1X/DAY
     Route: 048
     Dates: start: 20180814, end: 20180916
  2. URSOBIL [Concomitant]
     Active Substance: URSODIOL
  3. URBASON [METHYLPREDNISOLONE ACETATE] [Concomitant]
  4. ANTRA [OMEPRAZOLE MAGNESIUM] [Concomitant]

REACTIONS (4)
  - Aspartate aminotransferase increased [Unknown]
  - Blood creatine phosphokinase increased [Unknown]
  - Asthenia [Unknown]
  - Myoglobin blood increased [Unknown]

NARRATIVE: CASE EVENT DATE: 20180916
